FAERS Safety Report 24111388 (Version 1)
Quarter: 2024Q3

REPORT INFORMATION
  Report Type: Spontaneous
  Country: US (occurrence: US)
  Receive Date: 20240718
  Receipt Date: 20240718
  Transmission Date: 20241017
  Serious: No
  Sender: SANOFI AVENTIS
  Company Number: US-SA-SAC20240711001197

PATIENT
  Sex: Male
  Weight: 85.81 kg

DRUGS (1)
  1. DUPIXENT [Suspect]
     Active Substance: DUPILUMAB
     Indication: Asthma
     Dosage: 300 MG, QOW
     Route: 058

REACTIONS (5)
  - Eczema [Unknown]
  - Muscle spasms [Recovered/Resolved]
  - Anal pruritus [Unknown]
  - Lip exfoliation [Unknown]
  - Pruritus [Unknown]
